FAERS Safety Report 25710671 (Version 1)
Quarter: 2025Q3

REPORT INFORMATION
  Report Type: Spontaneous
  Country: US (occurrence: US)
  Receive Date: 20250821
  Receipt Date: 20250821
  Transmission Date: 20251021
  Serious: Yes (Other)
  Sender: SANDOZ
  Company Number: US-SANDOZ-SDZ2025US059235

PATIENT

DRUGS (1)
  1. RECLAST [Suspect]
     Active Substance: ZOLEDRONIC ACID
     Indication: Product used for unknown indication
     Route: 065

REACTIONS (8)
  - Cardiac disorder [Unknown]
  - Nasopharyngitis [Unknown]
  - Eating disorder [Unknown]
  - Pain [Unknown]
  - Influenza like illness [Unknown]
  - Arthralgia [Unknown]
  - Pain in extremity [Unknown]
  - Bone pain [Unknown]
